FAERS Safety Report 6540844-3 (Version None)
Quarter: 2010Q1

REPORT INFORMATION
  Report Type: 
  Country: None (occurrence: None)
  Receive Date: 20100118
  Receipt Date: 20100108
  Transmission Date: 20100710
  Serious: Yes (Hospitalization, Other)
  Sender: FDA-Public Use
  Company Number: PHHY2009JP30817

PATIENT
  Age: 74 Year
  Sex: Female

DRUGS (8)
  1. TEGRETOL [Suspect]
     Dosage: 200 MG DAILY
     Route: 048
     Dates: start: 20090721
  2. TEGRETOL [Suspect]
     Dosage: 400 MG DAILY
     Route: 048
     Dates: start: 20090722
  3. TEGRETOL [Suspect]
     Dosage: 200 MG DAILY
     Route: 048
     Dates: start: 20090723, end: 20090723
  4. FAMOTIDINE [Concomitant]
     Dosage: 20 MG, UNK
  5. EPINASTINE HYDROCHLORIDE [Concomitant]
     Dosage: 10 MG, UNK
  6. CANDESARTAN CILEXETIL [Concomitant]
     Dosage: 8 MG, UNK
  7. TEMOCAPRIL HYDROCHLORIDE [Concomitant]
     Dosage: 2 MG, UNK
  8. MEXILETINE HYDROCHLORIDE [Concomitant]
     Dosage: 300 MG, UNK
     Dates: start: 20090721

REACTIONS (11)
  - COMMUNICATION DISORDER [None]
  - DECREASED APPETITE [None]
  - DEPRESSED LEVEL OF CONSCIOUSNESS [None]
  - DISORIENTATION [None]
  - DRUG LEVEL INCREASED [None]
  - DRUG TOXICITY [None]
  - FALL [None]
  - MEMORY IMPAIRMENT [None]
  - PAIN IN EXTREMITY [None]
  - RESTLESSNESS [None]
  - SUBDURAL HAEMORRHAGE [None]
